FAERS Safety Report 13243114 (Version 1)
Quarter: 2017Q1

REPORT INFORMATION
  Report Type: Spontaneous
  Country: NL (occurrence: NL)
  Receive Date: 20170216
  Receipt Date: 20170216
  Transmission Date: 20170428
  Serious: Yes (Death, Hospitalization)
  Sender: FDA-Public Use
  Company Number: NL-SA-2017SA025658

PATIENT
  Sex: Male

DRUGS (13)
  1. MYCOPHENOLATE MOFETIL. [Suspect]
     Active Substance: MYCOPHENOLATE MOFETIL
     Route: 065
  2. ALEMTUZUMAB [Suspect]
     Active Substance: ALEMTUZUMAB
     Route: 065
  3. ANTI-THYMOCYTE GLOBULIN (RABBIT) [Suspect]
     Active Substance: LAPINE T-LYMPHOCYTE IMMUNE GLOBULIN
     Route: 065
  4. TACROLIMUS. [Concomitant]
     Active Substance: TACROLIMUS
  5. CYCLOPHOSPHAMIDE. [Concomitant]
     Active Substance: CYCLOPHOSPHAMIDE
     Indication: STEM CELL TRANSPLANT
  6. MELPHALAN [Concomitant]
     Active Substance: MELPHALAN
  7. POLYMYXIN [Concomitant]
     Active Substance: POLYMYXIN
     Indication: PROPHYLAXIS
  8. FLUDARABINE [Concomitant]
     Active Substance: FLUDARABINE PHOSPHATE
     Indication: STEM CELL TRANSPLANT
  9. PREDNISONE. [Suspect]
     Active Substance: PREDNISONE
     Route: 065
  10. TREOSULFAN [Concomitant]
     Active Substance: TREOSULFAN
     Indication: STEM CELL TRANSPLANT
     Dosage: DOSE:14 GRAM(S)/SQUARE METER
  11. DEFIBROTIDE [Concomitant]
     Active Substance: DEFIBROTIDE (BOVINE)
     Indication: PROPHYLAXIS
  12. AMPHOTERICIN B. [Concomitant]
     Active Substance: AMPHOTERICIN B
     Indication: PROPHYLAXIS
  13. NEOMYCIN [Concomitant]
     Active Substance: NEOMYCIN
     Indication: PROPHYLAXIS

REACTIONS (12)
  - Respiratory failure [Fatal]
  - Retinitis [Unknown]
  - Otitis media bacterial [Unknown]
  - Staphylococcal skin infection [Unknown]
  - Dehydration [Unknown]
  - Optic neuritis [Unknown]
  - Multiple organ dysfunction syndrome [Fatal]
  - Herpes zoster [Unknown]
  - Staphylococcal scalded skin syndrome [Unknown]
  - Varicella zoster virus infection [Fatal]
  - Gastroenteritis viral [Unknown]
  - Vision blurred [Unknown]
